FAERS Safety Report 6406395-1 (Version None)
Quarter: 2009Q4

REPORT INFORMATION
  Report Type: 
  Country: None (occurrence: None)
  Receive Date: 20091019
  Receipt Date: 20091009
  Transmission Date: 20100525
  Serious: Yes (Hospitalization, Other)
  Sender: FDA-Public Use
  Company Number: JP-ABBOTT-08P-087-0463316-00

PATIENT
  Age: 69 Year
  Sex: Male

DRUGS (4)
  1. LEUPLIN SR FOR INJECTION 11.25 MG [Suspect]
     Indication: PROSTATE CANCER
     Route: 058
     Dates: start: 20061222
  2. CASODEX [Concomitant]
     Indication: PROSTATE CANCER
     Route: 048
     Dates: start: 20061222
  3. TROXIPIDE [Concomitant]
     Indication: GASTROINTESTINAL DISORDER
     Route: 048
     Dates: start: 20061222
  4. TROXIPIDE [Concomitant]
     Indication: PROPHYLAXIS

REACTIONS (4)
  - CONSTIPATION [None]
  - DIABETES MELLITUS [None]
  - HOT FLUSH [None]
  - INGUINAL HERNIA [None]
